FAERS Safety Report 5629377-6 (Version None)
Quarter: 2008Q1

REPORT INFORMATION
  Report Type: 
  Country: None (occurrence: None)
  Receive Date: 20080218
  Receipt Date: 20080205
  Transmission Date: 20080703
  Serious: Yes (Death)
  Sender: FDA-Public Use
  Company Number: MX-BAYER-200812995GPV

PATIENT
  Age: 15 Year
  Sex: Male

DRUGS (9)
  1. ALEMTUZUMAB [Suspect]
     Indication: GRAFT VERSUS HOST DISEASE
     Dosage: AS USED: 10 MG
     Route: 058
  2. FLUDARABINE [Suspect]
     Indication: BONE MARROW CONDITIONING REGIMEN
     Route: 065
  3. CYCLOSPORINE [Concomitant]
     Indication: PROPHYLAXIS AGAINST GRAFT VERSUS HOST DISEASE
     Route: 065
  4. METHOTREXATE [Concomitant]
     Indication: PROPHYLAXIS AGAINST GRAFT VERSUS HOST DISEASE
     Route: 065
  5. CORTICOSTEROIDS [Concomitant]
     Indication: GRAFT VERSUS HOST DISEASE
     Route: 065
  6. TRIMETHOPRIM + SULFAMETHOXAZOLE [Concomitant]
     Indication: ANTIFUNGAL PROPHYLAXIS
  7. FLUCONAZOLE [Concomitant]
     Indication: ANTIFUNGAL PROPHYLAXIS
     Route: 065
  8. ITRACONAZOLE [Concomitant]
     Indication: ANTIFUNGAL PROPHYLAXIS
  9. ACYCLOVIR [Concomitant]
     Indication: ANTIVIRAL PROPHYLAXIS
     Route: 065

REACTIONS (1)
  - CHRONIC GRAFT VERSUS HOST DISEASE [None]
